FAERS Safety Report 9301220 (Version 1)
Quarter: 2013Q2

REPORT INFORMATION
  Report Type: Spontaneous
  Country: US (occurrence: US)
  Receive Date: 20130521
  Receipt Date: 20130521
  Transmission Date: 20140414
  Serious: Yes (Other)
  Sender: FDA-Public Use
  Company Number: US-BRISTOL-MYERS SQUIBB COMPANY-17277211

PATIENT
  Age: 71 Year
  Sex: Male
  Weight: 69.84 kg

DRUGS (1)
  1. BARACLUDE TABS 1.0 MG [Suspect]
     Dates: start: 201201

REACTIONS (2)
  - Drug resistance [Unknown]
  - Weight decreased [Unknown]
